FAERS Safety Report 4953589-8 (Version None)
Quarter: 2006Q1

REPORT INFORMATION
  Report Type: 
  Country: None (occurrence: None)
  Receive Date: 20060324
  Receipt Date: 20060224
  Transmission Date: 20060701
  Serious: Yes (Hospitalization)
  Sender: FDA-Public Use
  Company Number: US-MERCK-0602USA05683

PATIENT
  Age: 70 Year
  Sex: Female
  Weight: 73 kg

DRUGS (15)
  1. VIOXX [Suspect]
     Indication: ARTHRITIS
     Route: 048
     Dates: start: 20020413, end: 20021112
  2. BIAXIN XL [Concomitant]
     Route: 065
  3. LAMISIL [Concomitant]
     Route: 065
  4. TUSSIONEX (CHLORPHENIRAMINE POLISTIREX (+) HYDROCODONE POLISTIREX) [Concomitant]
     Route: 065
  5. TRIAMCINOLONE [Concomitant]
     Route: 065
  6. TRIAMCINOLONE ACETONIDE [Concomitant]
     Route: 065
  7. EVISTA [Concomitant]
     Route: 065
  8. METFORMIN [Concomitant]
     Route: 065
  9. FUROSEMIDE [Concomitant]
     Route: 065
  10. ACCUPRIL [Concomitant]
     Route: 065
  11. DOXYCYCLINE HYCLATE [Concomitant]
     Route: 065
  12. HEARTBEAT ELITE [Concomitant]
     Route: 065
  13. PAXIL [Concomitant]
     Route: 065
  14. NORVASC [Concomitant]
     Route: 065
  15. GLUCOPHAGE [Concomitant]
     Route: 065

REACTIONS (9)
  - CARDIOMEGALY [None]
  - CELLULITIS [None]
  - CEREBROVASCULAR ACCIDENT [None]
  - DEPRESSION [None]
  - HEART RATE IRREGULAR [None]
  - LABILE BLOOD PRESSURE [None]
  - OEDEMA PERIPHERAL [None]
  - PAIN [None]
  - PERIPHERAL PARALYSIS [None]
